FAERS Safety Report 16657042 (Version 2)
Quarter: 2019Q3

REPORT INFORMATION
  Report Type: Spontaneous
  Country: JP (occurrence: JP)
  Receive Date: 20190801
  Receipt Date: 20190808
  Transmission Date: 20191004
  Serious: Yes (Death, Life-Threatening, Other)
  Sender: FDA-Public Use
  Company Number: JP-KYOWAKIRIN-2017AKK001087

PATIENT

DRUGS (11)
  1. FLUDARA [Concomitant]
     Active Substance: FLUDARABINE PHOSPHATE
     Indication: STEM CELL TRANSPLANT
     Dosage: 35 MG, 5 TIMES IN TOTAL
     Route: 041
     Dates: start: 20160607, end: 20160611
  2. ALKERAN [Concomitant]
     Active Substance: MELPHALAN
     Indication: STEM CELL TRANSPLANT
     Dosage: 100 MG, 2 TIMES IN TOTAL
     Route: 041
     Dates: start: 20160610, end: 20160611
  3. REMICADE [Suspect]
     Active Substance: INFLIXIMAB
     Indication: ACUTE GRAFT VERSUS HOST DISEASE
     Dosage: 250 MG, 4 TIMES IN TOTAL
     Route: 041
     Dates: start: 20160723, end: 20160811
  4. RITUXAN [Concomitant]
     Active Substance: RITUXIMAB
     Indication: POST TRANSPLANT LYMPHOPROLIFERATIVE DISORDER
     Dosage: 550 MG, 7 TIMES IN TOTAL
     Route: 041
     Dates: start: 20160801, end: 20160913
  5. SOLU-MEDROL [Suspect]
     Active Substance: METHYLPREDNISOLONE SODIUM SUCCINATE
     Indication: ACUTE GRAFT VERSUS HOST DISEASE
     Dosage: 125 MG/DAY, TAPERING THEREAFTER
     Route: 041
     Dates: start: 20160627, end: 20160922
  6. NEUTROGIN [Concomitant]
     Active Substance: LENOGRASTIM
     Dosage: 250 MG, QD
     Route: 041
     Dates: start: 20160618, end: 20160626
  7. METHOTREXATE. [Suspect]
     Active Substance: METHOTREXATE
     Indication: PROPHYLAXIS AGAINST GRAFT VERSUS HOST DISEASE
     Dosage: 15 MG ON DAY 1, 10 MG ON DAYS 3 AND 6
     Route: 042
     Dates: start: 20160614, end: 20160619
  8. SANDIMMUN [Suspect]
     Active Substance: CYCLOSPORINE
     Indication: PROPHYLAXIS AGAINST GRAFT VERSUS HOST DISEASE
     Dosage: INITIATED AT 50 MG, ADJUSTED THEREAFTER
     Route: 041
     Dates: start: 20160803, end: 20160922
  9. POTELIGEO [Suspect]
     Active Substance: MOGAMULIZUMAB-KPKC
     Indication: ADULT T-CELL LYMPHOMA/LEUKAEMIA
     Dosage: 55 MG, 1X/WEEK
     Route: 041
     Dates: start: 20160427, end: 20160503
  10. PROGRAF [Suspect]
     Active Substance: TACROLIMUS\TACROLIMUS ANHYDROUS
     Indication: PROPHYLAXIS AGAINST GRAFT VERSUS HOST DISEASE
     Dosage: INITIATED AT 1.1 MG, ADJUSTED THEREAFTER
     Route: 041
     Dates: start: 20160612, end: 20160803
  11. THYMOGLOBULINE [Suspect]
     Active Substance: LAPINE T-LYMPHOCYTE IMMUNE GLOBULIN
     Indication: ACUTE GRAFT VERSUS HOST DISEASE
     Dosage: 1-2 MG, ABOUT 1X/WEEK
     Route: 041
     Dates: start: 20160628, end: 20160915

REACTIONS (4)
  - Acute graft versus host disease [Not Recovered/Not Resolved]
  - Post transplant lymphoproliferative disorder [Not Recovered/Not Resolved]
  - Pneumonia fungal [Fatal]
  - Hepatic failure [Not Recovered/Not Resolved]

NARRATIVE: CASE EVENT DATE: 20160628
